FAERS Safety Report 5491652-6 (Version None)
Quarter: 2007Q4

REPORT INFORMATION
  Report Type: 
  Country: None (occurrence: None)
  Receive Date: 20071018
  Receipt Date: 20071018
  Transmission Date: 20080405
  Serious: No
  Sender: FDA-Public Use
  Company Number: None

PATIENT
  Age: 54 Year
  Sex: Female

DRUGS (19)
  1. ARAVA [Suspect]
     Dates: start: 20040101, end: 20050815
  2. HYDROCHLOROTHIAZIDE [Concomitant]
  3. ACTONEL [Concomitant]
  4. ALTACE [Concomitant]
  5. NEXIUM [Concomitant]
  6. METOCLOPRAMIDE [Concomitant]
  7. METFORMIN [Concomitant]
  8. TYLENOL W/ CODEINE [Concomitant]
  9. VALTREX [Concomitant]
  10. IMITREX [Concomitant]
  11. PREMPRO [Concomitant]
  12. PRILOSEC [Concomitant]
  13. PREVACID [Concomitant]
  14. REMICADE [Concomitant]
  15. GOLD [Concomitant]
  16. METHOTREXATE [Concomitant]
  17. CORTISONE ACETATE TAB [Concomitant]
  18. MOTRIN [Concomitant]
  19. BENZOATE [Concomitant]

REACTIONS (27)
  - ANOREXIA [None]
  - ARTHRALGIA [None]
  - AUTOIMMUNE DISORDER [None]
  - CHROMOSOME ANALYSIS ABNORMAL [None]
  - CONSTIPATION [None]
  - DYSPHAGIA [None]
  - GASTROINTESTINAL HAEMORRHAGE [None]
  - HEADACHE [None]
  - HEART RATE INCREASED [None]
  - HEPATIC CIRRHOSIS [None]
  - HEPATIC CONGESTION [None]
  - HEPATIC FAILURE [None]
  - HEPATIC ISCHAEMIA [None]
  - HEPATIC STEATOSIS [None]
  - HEPATITIS ACUTE [None]
  - HOT FLUSH [None]
  - HYPERHIDROSIS [None]
  - LIVER DISORDER [None]
  - LIVER INJURY [None]
  - LIVER PALPABLE SUBCOSTAL [None]
  - MULTI-ORGAN FAILURE [None]
  - POST PROCEDURAL HAEMORRHAGE [None]
  - RASH [None]
  - RENAL FAILURE [None]
  - SHOCK [None]
  - SLEEP DISORDER [None]
  - WEIGHT DECREASED [None]
